FAERS Safety Report 9551803 (Version 2)
Quarter: 2013Q4

REPORT INFORMATION
  Report Type: Spontaneous
  Country: US (occurrence: US)
  Receive Date: 20131011
  Receipt Date: 20131011
  Transmission Date: 20140711
  Serious: Yes (Other)
  Sender: FDA-Public Use
  Company Number: PHEH2013US000510

PATIENT
  Sex: Female

DRUGS (11)
  1. DIOVAN HCT [Suspect]
     Dosage: UNK (160/25MG), UNK
     Dates: start: 2001
  2. DIOVAN HCT [Suspect]
     Dosage: UNK (80/12.5MG), UNK
  3. DIOVAN HCT [Suspect]
     Dosage: UNK UKN, (80/12.5 MG) BID
     Dates: start: 20130410
  4. HYDROCHLOROTHIAZIDE,VALSARTAN [Suspect]
     Dosage: UNK UKN, UNK
     Dates: start: 20130325
  5. LISINOPRIL [Suspect]
     Dosage: UNK UKN, UNK
  6. DILTIAZEM [Suspect]
  7. CANDESARTAN CILEXETIL [Suspect]
  8. HYZAAR [Suspect]
     Dosage: UNK UKN, UNK
     Dates: start: 200506
  9. NORVASC [Suspect]
     Dosage: UNK UKN, UNK
     Dates: start: 200506
  10. LEVOTHYROXINE [Concomitant]
     Dosage: UNK UKN, UNK
  11. ADVAIR [Concomitant]
     Dosage: UNK UKN, UNK

REACTIONS (21)
  - Myocardial infarction [Unknown]
  - Chronic obstructive pulmonary disease [Unknown]
  - Dyspnoea [Unknown]
  - Influenza [Unknown]
  - Blood pressure inadequately controlled [Recovered/Resolved]
  - Thyroid disorder [Unknown]
  - Goitre [Unknown]
  - Malaise [Unknown]
  - Chest pain [Recovered/Resolved]
  - Feeling abnormal [Unknown]
  - Pain in extremity [Unknown]
  - Fatigue [Unknown]
  - Cough [Unknown]
  - Arthralgia [Unknown]
  - Dizziness [Recovered/Resolved]
  - Local swelling [Unknown]
  - Headache [Unknown]
  - Joint swelling [Unknown]
  - Oral discomfort [Unknown]
  - Pruritus [Unknown]
  - Lip swelling [Unknown]
